FAERS Safety Report 19327504 (Version 2)
Quarter: 2021Q3

REPORT INFORMATION
  Report Type: Spontaneous
  Country: TR (occurrence: TR)
  Receive Date: 20210528
  Receipt Date: 20210802
  Transmission Date: 20211014
  Serious: Yes (Other)
  Sender: FDA-Public Use
  Company Number: TR-TRAVERE THERAPEUTICS, INC.-2021RTN00082

PATIENT
  Age: 12 Month
  Sex: Male
  Weight: 6 kg

DRUGS (1)
  1. CHOLBAM [Suspect]
     Active Substance: CHOLIC ACID
     Indication: INBORN ERROR IN PRIMARY BILE ACID SYNTHESIS
     Dosage: 15 MG/KG, 1X/DAY
     Dates: start: 20210108, end: 2021

REACTIONS (3)
  - Hepatic failure [Recovered/Resolved]
  - Hyperbilirubinaemia [Recovered/Resolved]
  - Disease progression [Recovered/Resolved]

NARRATIVE: CASE EVENT DATE: 202101
